FAERS Safety Report 7342702-3 (Version None)
Quarter: 2011Q1

REPORT INFORMATION
  Report Type: 
  Country: None (occurrence: None)
  Receive Date: 20110310
  Receipt Date: 20110307
  Transmission Date: 20110831
  Serious: Yes (Other)
  Sender: FDA-Public Use
  Company Number: US-PFIZER INC-2011040159

PATIENT
  Sex: Male
  Weight: 98.866 kg

DRUGS (2)
  1. LIPITOR [Suspect]
     Indication: BLOOD PRESSURE
  2. LIPITOR [Suspect]
     Indication: BLOOD CHOLESTEROL INCREASED
     Dosage: 10 MG, 2X/DAY
     Route: 048
     Dates: start: 20040101, end: 20100101

REACTIONS (3)
  - MUSCLE INJURY [None]
  - SKELETAL INJURY [None]
  - NERVE INJURY [None]
